FAERS Safety Report 5630907-9 (Version None)
Quarter: 2008Q1

REPORT INFORMATION
  Report Type: 
  Country: None (occurrence: None)
  Receive Date: 20080219
  Receipt Date: 20080207
  Transmission Date: 20080703
  Serious: Yes (Other)
  Sender: FDA-Public Use
  Company Number: GB-PFIZER INC-2008010146

PATIENT
  Sex: Female
  Weight: 88 kg

DRUGS (8)
  1. CHANTIX [Suspect]
     Indication: SMOKING CESSATION THERAPY
     Route: 048
     Dates: start: 20070731, end: 20070815
  2. AMLODIPINE [Concomitant]
     Indication: BLOOD PRESSURE FLUCTUATION
     Route: 048
  3. PERINDOPRIL [Concomitant]
     Indication: BLOOD PRESSURE FLUCTUATION
     Route: 048
  4. DYDROGESTERONE TAB [Concomitant]
     Indication: PREMENSTRUAL SYNDROME
     Route: 048
  5. DIAZEPAM [Concomitant]
     Indication: DEPRESSION
     Route: 048
  6. DIAZEPAM [Concomitant]
     Indication: ANXIETY
  7. ESCITALOPRAM [Concomitant]
     Indication: DEPRESSION
     Route: 048
  8. ESCITALOPRAM [Concomitant]
     Indication: ANXIETY

REACTIONS (2)
  - ANXIETY [None]
  - PANIC ATTACK [None]
